FAERS Safety Report 11223202 (Version 1)
Quarter: 2015Q2

REPORT INFORMATION
  Report Type: Spontaneous
  Country: TW (occurrence: TW)
  Receive Date: 20150626
  Receipt Date: 20150626
  Transmission Date: 20150821
  Serious: Yes (Hospitalization, Disabling, Other)
  Sender: FDA-Public Use
  Company Number: TW-GILEAD-2015-0157479

PATIENT
  Age: 62 Year
  Sex: Female

DRUGS (3)
  1. HARVONI [Suspect]
     Active Substance: LEDIPASVIR\SOFOSBUVIR
     Dosage: 1 DF, Q3DAYS
     Route: 048
     Dates: start: 20150608
  2. HARVONI [Suspect]
     Active Substance: LEDIPASVIR\SOFOSBUVIR
     Dosage: 1 DF, QOD
     Route: 048
     Dates: start: 20150528, end: 20150604
  3. HARVONI [Suspect]
     Active Substance: LEDIPASVIR\SOFOSBUVIR
     Indication: PRODUCT USED FOR UNKNOWN INDICATION
     Dosage: 1 DF, QD
     Route: 048
     Dates: start: 20150526, end: 20150527

REACTIONS (8)
  - Headache [Unknown]
  - Gastrointestinal disorder [Not Recovered/Not Resolved]
  - Gastritis [Not Recovered/Not Resolved]
  - Varices oesophageal [Not Recovered/Not Resolved]
  - Fatigue [Unknown]
  - Hypochromasia [Not Recovered/Not Resolved]
  - Sleep disorder [Unknown]
  - Vomiting [Unknown]

NARRATIVE: CASE EVENT DATE: 20150608
